FAERS Safety Report 7203961-0 (Version None)
Quarter: 2010Q4

REPORT INFORMATION
  Report Type: 
  Country: None (occurrence: None)
  Receive Date: 20101220
  Receipt Date: 20101021
  Transmission Date: 20110411
  Serious: Yes (Hospitalization, Other)
  Sender: FDA-Public Use
  Company Number: AUR-APL-2010-02644

PATIENT
  Age: 82 Year
  Sex: Male

DRUGS (4)
  1. RISPERIDONE [Suspect]
     Indication: AGGRESSION
     Dosage: 1MG - DAILY -
  2. RIVASTIGMINE [Concomitant]
  3. MEMANTINE [Concomitant]
  4. LORAZEPAM [Concomitant]

REACTIONS (3)
  - HALLUCINATION [None]
  - HYPOPHAGIA [None]
  - MALAISE [None]
